FAERS Safety Report 9471578 (Version 2)
Quarter: 2014Q3

REPORT INFORMATION
  Report Type: Spontaneous
  Country: US (occurrence: US)
  Receive Date: 20130822
  Receipt Date: 20140819
  Transmission Date: 20150326
  Serious: Yes (Hospitalization, Other)
  Sender: FDA-Public Use
  Company Number: US-009507513-1308USA009467

PATIENT
  Sex: Female
  Weight: 103.4 kg

DRUGS (1)
  1. NUVARING [Suspect]
     Active Substance: ETHINYL ESTRADIOL\ETONOGESTREL
     Indication: PRODUCT USED FOR UNKNOWN INDICATION
     Dosage: UNK
     Route: 067
     Dates: start: 200901, end: 20100909

REACTIONS (6)
  - Maternal exposure before pregnancy [Unknown]
  - Haemorrhoids [Unknown]
  - Abortion induced [Unknown]
  - Deep vein thrombosis [Unknown]
  - Migraine [Unknown]
  - Asthma [Unknown]

NARRATIVE: CASE EVENT DATE: 20100824
